FAERS Safety Report 18763553 (Version 1)
Quarter: 2021Q1

REPORT INFORMATION
  Report Type: Spontaneous
  Country: FR (occurrence: FR)
  Receive Date: 20210120
  Receipt Date: 20210120
  Transmission Date: 20210419
  Serious: Yes (Other)
  Sender: FDA-Public Use
  Company Number: FR-MYLANLABS-2021M1002945

PATIENT
  Age: 65 Year
  Sex: Female
  Weight: 62 kg

DRUGS (7)
  1. LOVENOX [Concomitant]
     Active Substance: ENOXAPARIN SODIUM
     Dosage: 1 DOSAGE FORM, QD
     Route: 058
  2. AMLODIPINE [Concomitant]
     Active Substance: AMLODIPINE BESYLATE
     Dosage: 10 MILLIGRAM, QD
  3. DESLORATADINE. [Suspect]
     Active Substance: DESLORATADINE
     Indication: PRURITUS
     Dosage: 1 DOSAGE FORM, QD
     Route: 048
     Dates: start: 20201026, end: 20201103
  4. LEVOFLOXACINE ACCORD [Suspect]
     Active Substance: LEVOFLOXACIN
     Indication: LUNG DISORDER
     Dosage: 2 DOSAGE FORM, QD
     Route: 048
     Dates: start: 20201025, end: 20201104
  5. BISOPROLOL                         /00802602/ [Concomitant]
     Active Substance: BISOPROLOL
     Dosage: 10 MILLIGRAM, QD
  6. TRAMADOL. [Concomitant]
     Active Substance: TRAMADOL
     Dosage: 200 MILLIGRAM, QD
  7. VALACYCLOVIR [Suspect]
     Active Substance: VALACYCLOVIR HYDROCHLORIDE
     Indication: HERPES ZOSTER
     Dosage: 6 DOSAGE FORM, QD
     Route: 048
     Dates: start: 20201026, end: 20201102

REACTIONS (1)
  - Hepatocellular injury [Recovering/Resolving]

NARRATIVE: CASE EVENT DATE: 20201104
